FAERS Safety Report 17219782 (Version 1)
Quarter: 2019Q4

REPORT INFORMATION
  Report Type: Spontaneous
  Country: TR (occurrence: TR)
  Receive Date: 20191231
  Receipt Date: 20191231
  Transmission Date: 20200122
  Serious: Yes (Other)
  Sender: FDA-Public Use
  Company Number: NVSC2019TR080162

PATIENT
  Age: 17 Year
  Sex: Male

DRUGS (4)
  1. PREDNISOLONE. [Suspect]
     Active Substance: PREDNISOLONE
     Indication: RENAL TRANSPLANT
     Dosage: 500 MG, QD
     Route: 065
  2. PREDNISOLONE. [Suspect]
     Active Substance: PREDNISOLONE
     Indication: IMMUNOSUPPRESSANT DRUG THERAPY
  3. AZATHIOPRINE. [Suspect]
     Active Substance: AZATHIOPRINE
     Indication: IMMUNOSUPPRESSANT DRUG THERAPY
  4. AZATHIOPRINE. [Suspect]
     Active Substance: AZATHIOPRINE
     Indication: RENAL TRANSPLANT
     Dosage: UNK
     Route: 065

REACTIONS (9)
  - Chronic allograft nephropathy [Unknown]
  - Non-Hodgkin^s lymphoma [Unknown]
  - Pneumonia [Unknown]
  - Ascites [Unknown]
  - Cardiomegaly [Unknown]
  - Transplant rejection [Unknown]
  - Pericardial effusion [Unknown]
  - Post transplant lymphoproliferative disorder [Unknown]
  - Lung infiltration [Unknown]
